FAERS Safety Report 7811861-8 (Version None)
Quarter: 2011Q4

REPORT INFORMATION
  Report Type: 
  Country: None (occurrence: None)
  Receive Date: 20111013
  Receipt Date: 20110928
  Transmission Date: 20120403
  Serious: Yes (Other)
  Sender: FDA-Public Use
  Company Number: PHHY2011BR86836

PATIENT
  Age: 71 Year
  Sex: Male

DRUGS (3)
  1. DIOVAN HCT [Suspect]
     Indication: HYPERTENSION
     Dosage: 320 MG VALS AND 12.5 MG HYDRO, 1 DF, DAILY
  2. RASILEZ [Suspect]
  3. ABLOK [Concomitant]

REACTIONS (3)
  - DIABETES MELLITUS [None]
  - VISUAL IMPAIRMENT [None]
  - BLOOD PRESSURE FLUCTUATION [None]
